FAERS Safety Report 4596290-5 (Version None)
Quarter: 2005Q1

REPORT INFORMATION
  Report Type: 
  Country: None (occurrence: None)
  Receive Date: 20050302
  Receipt Date: 20050222
  Transmission Date: 20050727
  Serious: Yes (Hospitalization)
  Sender: FDA-Public Use
  Company Number: JP-MERCK-0502USA03344

PATIENT
  Age: 69 Year
  Sex: Female

DRUGS (9)
  1. PEPCID RPD [Suspect]
     Route: 048
     Dates: start: 20040614
  2. BLOPRESS [Suspect]
     Route: 048
     Dates: start: 20041018
  3. METFORMIN HYDROCHLORIDE [Concomitant]
     Route: 048
  4. ALDOMET [Concomitant]
     Route: 048
  5. ADALAT [Concomitant]
     Route: 048
  6. ADALAT [Concomitant]
     Route: 048
  7. AMLODIN [Concomitant]
     Route: 048
  8. GLICLAZIDE [Concomitant]
     Route: 048
  9. THYRADIN-S [Concomitant]
     Route: 048

REACTIONS (1)
  - INTERSTITIAL LUNG DISEASE [None]
